FAERS Safety Report 7618195-5 (Version None)
Quarter: 2011Q3

REPORT INFORMATION
  Report Type: 
  Country: None (occurrence: None)
  Receive Date: 20110718
  Receipt Date: 20110621
  Transmission Date: 20111222
  Serious: Yes (Hospitalization)
  Sender: FDA-Public Use
  Company Number: US-GLAXOSMITHKLINE-A0893500A

PATIENT
  Age: 45 Year
  Sex: Male
  Weight: 108.6 kg

DRUGS (10)
  1. INSULIN [Concomitant]
  2. VYTORIN [Concomitant]
  3. CYMBALTA [Concomitant]
  4. AVANDIA [Suspect]
     Indication: TYPE 2 DIABETES MELLITUS
     Dosage: 4MG PER DAY
     Route: 048
     Dates: start: 19990101, end: 20070101
  5. SYNTHROID [Concomitant]
  6. NASACORT [Concomitant]
  7. PEPCID [Concomitant]
  8. ALLEGRA [Concomitant]
  9. LISINOPRIL [Concomitant]
  10. CELEBREX [Concomitant]

REACTIONS (3)
  - ANGINA UNSTABLE [None]
  - CORONARY ARTERY DISEASE [None]
  - CARDIOVASCULAR DISORDER [None]
